FAERS Safety Report 21943794 (Version 1)
Quarter: 2023Q1

REPORT INFORMATION
  Report Type: Spontaneous
  Country: AU (occurrence: AU)
  Receive Date: 20230202
  Receipt Date: 20230202
  Transmission Date: 20230417
  Serious: Yes (Death, Other)
  Sender: FDA-Public Use
  Company Number: AU-CIPLA LTD.-2023AU00564

PATIENT

DRUGS (6)
  1. PREGABALIN [Suspect]
     Active Substance: PREGABALIN
     Indication: Pain management
     Dosage: UNK, AT NIGHT
     Route: 065
  2. DOXYLAMINE SUCCINATE [Suspect]
     Active Substance: DOXYLAMINE SUCCINATE
     Indication: Sedative therapy
     Dosage: UNK, AT NIGHT
     Route: 065
  3. AMITRIPTYLINE [Suspect]
     Active Substance: AMITRIPTYLINE
     Indication: Antipsychotic therapy
     Dosage: 100 MILLIGRAM, QD, AT NIGHT
     Route: 065
  4. FENTANYL [Suspect]
     Active Substance: FENTANYL
     Indication: Pain management
     Dosage: 75 MICROGRAM, QD
     Route: 062
  5. METHADONE [Suspect]
     Active Substance: METHADONE HYDROCHLORIDE
     Indication: Pain management
     Dosage: 10 MILLIGRAM, QD
     Route: 048
  6. MEPERIDINE [Suspect]
     Active Substance: MEPERIDINE
     Indication: Pain management
     Dosage: 50 MILLIGRAM, UNK
     Route: 030

REACTIONS (3)
  - Respiratory depression [Fatal]
  - Toxicity to various agents [Fatal]
  - Product communication issue [Fatal]
